FAERS Safety Report 13667195 (Version 3)
Quarter: 2017Q3

REPORT INFORMATION
  Report Type: Report from Study
  Country: IT (occurrence: IT)
  Receive Date: 20170619
  Receipt Date: 20170718
  Transmission Date: 20171127
  Serious: Yes (Death, Hospitalization, Other)
  Sender: FDA-Public Use
  Company Number: IT-TEVA-773736ACC

PATIENT
  Age: 44 Year
  Sex: Male

DRUGS (10)
  1. CLOFARABINE. [Suspect]
     Active Substance: CLOFARABINE
     Indication: ACUTE MYELOID LEUKAEMIA
     Dosage: 22.5 MG/MQ FOR 5 DAYS
     Route: 065
  2. CYTARABINE. [Suspect]
     Active Substance: CYTARABINE
     Dosage: 2MG/MQ/DAILY FOR FIVE DAYS (RE-INDUCTION THERAPY)
     Route: 065
  3. FLUDARABINE [Suspect]
     Active Substance: FLUDARABINE PHOSPHATE
     Indication: ACUTE MYELOID LEUKAEMIA
     Dosage: 30MG/MQ/DAILY FOR 5 DAYS
     Route: 065
  4. IDARUBICIN [Suspect]
     Active Substance: IDARUBICIN
     Indication: ACUTE MYELOID LEUKAEMIA
     Dosage: 10MG/MQ/DAILY FOR 3 DAYS
  5. POSACONAZOLE [Suspect]
     Active Substance: POSACONAZOLE
     Indication: ACUTE MYELOID LEUKAEMIA
  6. CYTARABINE. [Suspect]
     Active Substance: CYTARABINE
     Indication: ACUTE MYELOID LEUKAEMIA
     Dosage: 100MG/MQ FOR 7 DAYS
     Route: 065
  7. CYTARABINE. [Suspect]
     Active Substance: CYTARABINE
     Dosage: 1.5 G/MQ FOR 5 DAYS
     Route: 065
  8. AMPHOTERICIN B. [Suspect]
     Active Substance: AMPHOTERICIN B
     Indication: PRODUCT USED FOR UNKNOWN INDICATION
  9. DOXORUBICIN [Suspect]
     Active Substance: DOXORUBICIN
     Indication: ACUTE MYELOID LEUKAEMIA
     Dosage: 50MG/MQ FOR 3 DAYS
     Route: 065
  10. VORICONAZOLE. [Suspect]
     Active Substance: VORICONAZOLE
     Indication: PRODUCT USED FOR UNKNOWN INDICATION

REACTIONS (11)
  - Febrile neutropenia [Fatal]
  - Necrosis [Fatal]
  - Cough [Fatal]
  - Drug ineffective [Fatal]
  - Drug resistance [Fatal]
  - Disease progression [Fatal]
  - Acute respiratory failure [Fatal]
  - Ischaemia [Fatal]
  - Fusarium infection [Fatal]
  - Skin lesion [Fatal]
  - Neutropenia [Fatal]
